FAERS Safety Report 12005459 (Version 1)
Quarter: 2016Q1

REPORT INFORMATION
  Report Type: Report from Study
  Country: US (occurrence: US)
  Receive Date: 20160204
  Receipt Date: 20160204
  Transmission Date: 20160526
  Serious: No
  Sender: FDA-Public Use
  Company Number: US-ABBVIE-15K-163-1429430-00

PATIENT
  Age: 59 Year
  Sex: Female
  Weight: 62.65 kg

DRUGS (6)
  1. NABUMETONE. [Concomitant]
     Active Substance: NABUMETONE
     Indication: PAIN
  2. ALEVE [Concomitant]
     Active Substance: NAPROXEN SODIUM
     Indication: PAIN
  3. DICLOFENAC [Concomitant]
     Active Substance: DICLOFENAC
     Indication: PRODUCT USED FOR UNKNOWN INDICATION
  4. HUMIRA [Suspect]
     Active Substance: ADALIMUMAB
     Indication: RHEUMATOID ARTHRITIS
     Route: 058
     Dates: end: 2014
  5. HUMIRA [Suspect]
     Active Substance: ADALIMUMAB
     Route: 058
     Dates: start: 20150615
  6. IBUPROFEN. [Concomitant]
     Active Substance: IBUPROFEN
     Indication: PAIN

REACTIONS (5)
  - Peripheral swelling [Unknown]
  - Influenza [Recovered/Resolved]
  - Joint swelling [Not Recovered/Not Resolved]
  - Arthropathy [Unknown]
  - Nasopharyngitis [Recovered/Resolved]

NARRATIVE: CASE EVENT DATE: 201505
